FAERS Safety Report 7802955-1 (Version None)
Quarter: 2011Q4

REPORT INFORMATION
  Report Type: 
  Country: None (occurrence: None)
  Receive Date: 20111005
  Receipt Date: 20110927
  Transmission Date: 20120403
  Serious: Yes (Other)
  Sender: FDA-Public Use
  Company Number: NSR_00281_2011

PATIENT
  Age: 53 Year
  Sex: Male

DRUGS (2)
  1. VENLAFAXINE [Suspect]
     Indication: PRODUCT USED FOR UNKNOWN INDICATION
     Dosage: (150 MG QD), (225 MG QD), (150 MG QD)
  2. ESOMEPRAZOLE SODIUM [Concomitant]

REACTIONS (5)
  - MEMORY IMPAIRMENT [None]
  - DELIRIUM [None]
  - CONFUSIONAL STATE [None]
  - DISORIENTATION [None]
  - AGITATION [None]
